FAERS Safety Report 9150529 (Version 2)
Quarter: 2013Q1

REPORT INFORMATION
  Report Type: Report from Study
  Country: DE (occurrence: DE)
  Receive Date: 20130308
  Receipt Date: 20130320
  Transmission Date: 20140127
  Serious: Yes (Hospitalization)
  Sender: FDA-Public Use
  Company Number: DE-ROCHE-1198363

PATIENT
  Age: 72 Year
  Sex: Male
  Weight: 90 kg

DRUGS (16)
  1. BEVACIZUMAB [Suspect]
     Indication: COLON CANCER
     Dosage: DATE OF MOST RECENT DOSE PRIOR TO SAE ONSET: 13/FEB/2013
     Route: 065
     Dates: start: 20120718, end: 20130227
  2. BEVACIZUMAB [Suspect]
     Route: 065
     Dates: start: 20120303
  3. LEUCOVORIN [Suspect]
     Indication: COLON CANCER
     Dosage: DATE OF MOST RECENT DOSE PRIOR TO SAE ONSET: 13/FEB/2013
     Route: 065
     Dates: start: 20120718, end: 20130227
  4. LEUCOVORIN [Suspect]
     Route: 065
     Dates: start: 20130306
  5. 5-FLUOROURACIL [Suspect]
     Indication: COLON CANCER
     Dosage: DATE OF MOST RECENT DOSE PRIOR TO SAE ONSET: 13/FEB/2013
     Route: 065
     Dates: start: 20120718, end: 20130227
  6. 5-FLUOROURACIL [Suspect]
     Route: 065
     Dates: start: 20130306
  7. NEUROCIL [Suspect]
     Indication: COLON CANCER
     Route: 065
  8. XARELTO [Concomitant]
     Route: 048
  9. BISOPROLOL [Concomitant]
     Indication: HYPERTENSION
     Route: 048
  10. SIMVASTATIN [Concomitant]
     Route: 048
  11. ACETYLDIGITOXIN [Concomitant]
     Route: 048
  12. ACEMETACIN [Concomitant]
     Route: 065
  13. MCP [Concomitant]
     Indication: NAUSEA
     Route: 048
  14. PANTOPRAZOL [Concomitant]
     Route: 048
  15. AMPHO MORONAL [Concomitant]
     Route: 048
  16. MAGNESIUM VERLA [Concomitant]
     Route: 048

REACTIONS (1)
  - Neuroleptic malignant syndrome [Recovered/Resolved]
